FAERS Safety Report 14033452 (Version 2)
Quarter: 2017Q4

REPORT INFORMATION
  Report Type: Report from Study
  Country: JP (occurrence: JP)
  Receive Date: 20171003
  Receipt Date: 20171108
  Transmission Date: 20180321
  Serious: Yes (Hospitalization, Other)
  Sender: FDA-Public Use
  Company Number: JP-ROCHE-2000458

PATIENT
  Age: 56 Year
  Sex: Female
  Weight: 54 kg

DRUGS (37)
  1. MYCOPHENOLATE MOFETIL. [Suspect]
     Active Substance: MYCOPHENOLATE MOFETIL
     Route: 048
     Dates: start: 20170317, end: 20170406
  2. VALIXA [Suspect]
     Active Substance: VALGANCICLOVIR
     Indication: RENAL TRANSPLANT
     Route: 048
     Dates: start: 20170130, end: 20170316
  3. BREDININ [Suspect]
     Active Substance: MIZORIBINE
     Indication: RENAL TRANSPLANT
     Route: 048
     Dates: start: 20170516, end: 20170608
  4. MEDROL [Concomitant]
     Active Substance: METHYLPREDNISOLONE
     Route: 048
     Dates: start: 20170116, end: 20170122
  5. MEDROL [Concomitant]
     Active Substance: METHYLPREDNISOLONE
     Route: 048
     Dates: start: 20170222, end: 20170228
  6. SOLU-MEDROL [Concomitant]
     Active Substance: METHYLPREDNISOLONE SODIUM SUCCINATE
     Route: 042
     Dates: start: 20170123, end: 20170123
  7. SOLU-MEDROL [Concomitant]
     Active Substance: METHYLPREDNISOLONE SODIUM SUCCINATE
     Route: 042
     Dates: start: 20170127, end: 20170127
  8. BASILIXIMAB [Concomitant]
     Active Substance: BASILIXIMAB
     Route: 042
     Dates: start: 20170123, end: 20170123
  9. MYCOPHENOLATE MOFETIL. [Suspect]
     Active Substance: MYCOPHENOLATE MOFETIL
     Indication: RENAL TRANSPLANT
     Route: 048
     Dates: start: 20170116, end: 20170207
  10. BREDININ [Suspect]
     Active Substance: MIZORIBINE
     Route: 048
     Dates: start: 20170707
  11. TACROLIMUS HYDRATE [Suspect]
     Active Substance: TACROLIMUS
     Route: 048
     Dates: start: 20170202, end: 20170330
  12. LOXONIN [Concomitant]
     Active Substance: LOXOPROFEN SODIUM
     Route: 048
     Dates: start: 20170117, end: 20170117
  13. SOLU-MEDROL [Concomitant]
     Active Substance: METHYLPREDNISOLONE SODIUM SUCCINATE
     Route: 042
     Dates: start: 20170125, end: 20170125
  14. MEDROL [Concomitant]
     Active Substance: METHYLPREDNISOLONE
     Route: 048
     Dates: start: 20170130, end: 20170220
  15. FLORID [Concomitant]
     Active Substance: MICONAZOLE
     Indication: INFECTION PROPHYLAXIS
     Route: 048
     Dates: start: 20170125, end: 20170601
  16. RITUXIMAB. [Suspect]
     Active Substance: RITUXIMAB
     Indication: RENAL TRANSPLANT
     Route: 042
     Dates: start: 20170117, end: 20170117
  17. MYCOPHENOLATE MOFETIL. [Suspect]
     Active Substance: MYCOPHENOLATE MOFETIL
     Route: 048
     Dates: start: 20170222, end: 20170316
  18. VALIXA [Suspect]
     Active Substance: VALGANCICLOVIR
     Route: 048
     Dates: start: 20170420, end: 20170501
  19. TACROLIMUS HYDRATE [Suspect]
     Active Substance: TACROLIMUS
     Indication: RENAL TRANSPLANT
     Route: 048
     Dates: start: 20170116, end: 20170201
  20. MEDROL [Concomitant]
     Active Substance: METHYLPREDNISOLONE
     Route: 048
     Dates: start: 20170207, end: 20170221
  21. SOLU-MEDROL [Concomitant]
     Active Substance: METHYLPREDNISOLONE SODIUM SUCCINATE
     Route: 042
     Dates: start: 20170126, end: 20170126
  22. SANMEL [Concomitant]
     Indication: PROPHYLAXIS AGAINST GASTROINTESTINAL ULCER
     Route: 048
     Dates: start: 20170125, end: 20170221
  23. MYCOPHENOLATE MOFETIL. [Suspect]
     Active Substance: MYCOPHENOLATE MOFETIL
     Route: 048
     Dates: start: 20170407, end: 20170427
  24. BAKTAR [Suspect]
     Active Substance: SULFAMETHOXAZOLE\TRIMETHOPRIM
     Indication: RENAL TRANSPLANT
     Route: 048
     Dates: start: 20170130, end: 20170420
  25. MEDROL [Concomitant]
     Active Substance: METHYLPREDNISOLONE
     Route: 048
     Dates: start: 20170301
  26. SOLU-MEDROL [Concomitant]
     Active Substance: METHYLPREDNISOLONE SODIUM SUCCINATE
     Route: 042
     Dates: start: 20170124, end: 20170124
  27. LANSOPRAZOLE. [Concomitant]
     Active Substance: LANSOPRAZOLE
     Indication: PROPHYLAXIS AGAINST GASTROINTESTINAL ULCER
     Route: 048
     Dates: start: 20170116, end: 20170221
  28. LANSOPRAZOLE. [Concomitant]
     Active Substance: LANSOPRAZOLE
     Route: 048
     Dates: start: 20170222, end: 20170531
  29. MYCOPHENOLATE MOFETIL. [Suspect]
     Active Substance: MYCOPHENOLATE MOFETIL
     Route: 048
     Dates: start: 20170208, end: 20170221
  30. VALIXA [Suspect]
     Active Substance: VALGANCICLOVIR
     Route: 048
     Dates: start: 20170502, end: 20170515
  31. CICLOSPORIN [Suspect]
     Active Substance: CYCLOSPORINE
     Indication: RENAL TRANSPLANT
     Route: 048
     Dates: start: 20170331
  32. BREDININ [Suspect]
     Active Substance: MIZORIBINE
     Indication: NEUTROPENIA
     Route: 048
     Dates: start: 20170615, end: 20170706
  33. SOLU-CORTEF [Concomitant]
     Active Substance: HYDROCORTISONE SODIUM SUCCINATE
     Route: 042
     Dates: start: 20170117, end: 20170117
  34. MYCOPHENOLATE MOFETIL. [Suspect]
     Active Substance: MYCOPHENOLATE MOFETIL
     Route: 048
     Dates: start: 20170504, end: 20170511
  35. MEDROL [Concomitant]
     Active Substance: METHYLPREDNISOLONE
     Route: 048
     Dates: start: 20170203, end: 20170206
  36. SOLU-MEDROL [Concomitant]
     Active Substance: METHYLPREDNISOLONE SODIUM SUCCINATE
     Route: 042
     Dates: start: 20170128, end: 20170128
  37. BASILIXIMAB [Concomitant]
     Active Substance: BASILIXIMAB
     Route: 042
     Dates: start: 20170127, end: 20170127

REACTIONS (7)
  - Neutropenia [Recovering/Resolving]
  - Febrile neutropenia [Recovered/Resolved]
  - Alopecia [Recovered/Resolved]
  - Cytomegalovirus infection [Recovered/Resolved]
  - Thrombocytopenia [Recovered/Resolved]
  - Hyperuricaemia [Recovering/Resolving]
  - Hypertension [Recovering/Resolving]

NARRATIVE: CASE EVENT DATE: 20170316
